FAERS Safety Report 7950109-0 (Version None)
Quarter: 2011Q4

REPORT INFORMATION
  Report Type: 
  Country: None (occurrence: None)
  Receive Date: 20111130
  Receipt Date: 20111121
  Transmission Date: 20120403
  Serious: Yes (Hospitalization)
  Sender: FDA-Public Use
  Company Number: US-ASTRAZENECA-2011SE54980

PATIENT
  Age: 50 Year
  Sex: Male

DRUGS (2)
  1. ATORVASTATIN [Concomitant]
  2. CRESTOR [Suspect]
     Route: 048
     Dates: start: 20100101

REACTIONS (3)
  - APPARENT DEATH [None]
  - CALCULUS URINARY [None]
  - MYALGIA [None]
